FAERS Safety Report 8737774 (Version 3)
Quarter: 2013Q2

REPORT INFORMATION
  Report Type: Spontaneous
  Country: US (occurrence: DE)
  Receive Date: 20120822
  Receipt Date: 20130520
  Transmission Date: 20140414
  Serious: Yes (Life-Threatening, Hospitalization, Other)
  Sender: FDA-Public Use
  Company Number: DE-009507513-1208DEU003573

PATIENT
  Age: 45 Year
  Sex: Female

DRUGS (5)
  1. SINGULAIR [Suspect]
     Indication: BUTTERFLY RASH
     Dosage: UNK
     Route: 048
     Dates: start: 2010, end: 201206
  2. SINGULAIR [Suspect]
     Indication: EOSINOPHILIA
  3. METHOTREXATE [Concomitant]
     Indication: EOSINOPHILIA
     Dosage: UNK
     Dates: start: 20100827, end: 201205
  4. ENDOXAN [Concomitant]
     Dosage: UNK
     Dates: start: 2012
  5. CORTICOSTEROIDS (UNSPECIFIED) [Concomitant]
     Indication: EOSINOPHILIA
     Dosage: UNK
     Dates: start: 20100827

REACTIONS (4)
  - Allergic granulomatous angiitis [Recovered/Resolved with Sequelae]
  - Off label use [Unknown]
  - Hepatic function abnormal [Unknown]
  - Uterine leiomyoma [Unknown]
